FAERS Safety Report 10024712 (Version 1)
Quarter: 2014Q1

REPORT INFORMATION
  Report Type: Spontaneous
  Country: US (occurrence: None)
  Receive Date: 20140318
  Receipt Date: 20140318
  Transmission Date: 20141002
  Serious: Yes (Other)
  Sender: FDA-Public Use
  Company Number: FK201400784

PATIENT
  Age: 97 Year
  Sex: 0
  Weight: 56.25 kg

DRUGS (5)
  1. DIPHENHYDRAMINE HYDROCHLORIDE [Suspect]
     Indication: ERYTHEMA
     Dosage: 50 MG, ONCE, IV PUSH
     Route: 042
     Dates: start: 20140228, end: 20140228
  2. ATENOLOL (ATENOLOL) [Concomitant]
  3. KEFLEX (CEFALEXIN) [Concomitant]
  4. XANAX (ALPRAZOLAM) [Concomitant]
  5. LEVOTHYROXINE (LEVOTHYROXINE) [Concomitant]

REACTIONS (3)
  - Blood pressure increased [None]
  - Pruritus [None]
  - Somnolence [None]
